FAERS Safety Report 23344009 (Version 2)
Quarter: 2023Q4

REPORT INFORMATION
  Report Type: Spontaneous
  Country: PL (occurrence: PL)
  Receive Date: 20231227
  Receipt Date: 20231229
  Transmission Date: 20240110
  Serious: Yes (Hospitalization, Other)
  Sender: FDA-Public Use
  Company Number: None

PATIENT
  Age: 71 Year
  Sex: Female

DRUGS (11)
  1. CYCLOSPORINE [Suspect]
     Active Substance: CYCLOSPORINE
     Indication: Dermatomyositis
     Route: 048
     Dates: start: 2020
  2. PREDNISOLONE [Suspect]
     Active Substance: PREDNISOLONE
     Indication: Dermatomyositis
     Route: 065
     Dates: start: 2016
  3. TRIAMCINOLONE [Suspect]
     Active Substance: TRIAMCINOLONE
     Indication: Dermatomyositis
     Route: 065
     Dates: start: 2020
  4. PREDNISONE [Suspect]
     Active Substance: PREDNISONE
     Indication: Dermatomyositis
     Route: 065
     Dates: start: 2020
  5. METHYLPREDNISOLONE SODIUM SUCCINATE [Suspect]
     Active Substance: METHYLPREDNISOLONE SODIUM SUCCINATE
     Indication: Dermatomyositis
     Dosage: 250 MG FOR 3 CONSECUTIVE DAYS, PULSE TREATMENT,
     Route: 042
     Dates: start: 2020
  6. METHYLPREDNISOLONE [Suspect]
     Active Substance: METHYLPREDNISOLONE
     Indication: Dermatomyositis
     Dosage: DOSE FURTHER MODIFIED
     Route: 048
     Dates: start: 2017
  7. FLUDROCORTISONE [Suspect]
     Active Substance: FLUDROCORTISONE
     Indication: Product used for unknown indication
     Route: 065
     Dates: start: 2020
  8. AZATHIOPRINE [Suspect]
     Active Substance: AZATHIOPRINE
     Indication: Dermatomyositis
     Dosage: DOSE FURTHER MODIFIED
     Route: 065
     Dates: start: 2017
  9. LEFLUNOMIDE [Suspect]
     Active Substance: LEFLUNOMIDE
     Indication: Dermatomyositis
     Route: 065
  10. MYCOPHENOLATE MOFETIL [Suspect]
     Active Substance: MYCOPHENOLATE MOFETIL
     Indication: Dermatomyositis
     Route: 065
  11. CHLOROQUINE [Suspect]
     Active Substance: CHLOROQUINE
     Indication: Dermatomyositis
     Route: 065

REACTIONS (15)
  - Interstitial lung disease [Unknown]
  - Erythema [Unknown]
  - Extremity contracture [Unknown]
  - Osteoporosis [Unknown]
  - Cutaneous calcification [Unknown]
  - Petechiae [Unknown]
  - Hypertension [Unknown]
  - Oedema peripheral [Unknown]
  - Skin exfoliation [Unknown]
  - Varicose vein [Unknown]
  - Type V hyperlipidaemia [Unknown]
  - Secondary adrenocortical insufficiency [Unknown]
  - Muscular weakness [Unknown]
  - Lung opacity [Unknown]
  - Interstitial lung abnormality [Unknown]
